FAERS Safety Report 14776138 (Version 1)
Quarter: 2018Q2

REPORT INFORMATION
  Report Type: Spontaneous
  Country: GB (occurrence: GB)
  Receive Date: 20180418
  Receipt Date: 20180418
  Transmission Date: 20180711
  Serious: Yes (Hospitalization)
  Sender: FDA-Public Use
  Company Number: GB-MYLANLABS-2018M1025087

PATIENT
  Age: 31 Year
  Sex: Male

DRUGS (4)
  1. CISPLATIN. [Suspect]
     Active Substance: CISPLATIN
     Indication: EPSTEIN-BARR VIRUS INFECTION
  2. FLUOROURACIL. [Suspect]
     Active Substance: FLUOROURACIL
     Indication: NASOPHARYNGEAL CANCER
     Dosage: NEOADJUVANT INDUCTION CHEMOTHERAPY
     Route: 065
  3. CISPLATIN. [Suspect]
     Active Substance: CISPLATIN
     Indication: NASOPHARYNGEAL CANCER
     Dosage: NEOADJUVANT INDUCTION CHEMOTHERAPY
     Route: 065
  4. FLUOROURACIL. [Suspect]
     Active Substance: FLUOROURACIL
     Indication: EPSTEIN-BARR VIRUS INFECTION

REACTIONS (2)
  - Pharyngeal abscess [Recovered/Resolved]
  - Staphylococcal infection [Recovered/Resolved]
